FAERS Safety Report 20546822 (Version 1)
Quarter: 2022Q1

REPORT INFORMATION
  Report Type: Spontaneous
  Country: US (occurrence: US)
  Receive Date: 20220303
  Receipt Date: 20220303
  Transmission Date: 20220423
  Serious: Yes (Life-Threatening, Hospitalization, Other)
  Sender: FDA-Public Use
  Company Number: US-JUBILANT CADISTA PHARMACEUTICALS-2022JUB00042

PATIENT
  Age: 17 Year
  Sex: Male

DRUGS (2)
  1. QUETIAPINE [Suspect]
     Active Substance: QUETIAPINE
     Indication: Suicide attempt
     Dosage: 130 MG/KG, ONCE
     Route: 065
  2. FLUVOXAMINE [Suspect]
     Active Substance: FLUVOXAMINE
     Indication: Suicide attempt
     Dosage: 32 MG/KG, ONCE
     Route: 065

REACTIONS (5)
  - Vasoplegia syndrome [Recovered/Resolved]
  - Rhabdomyolysis [Recovered/Resolved]
  - Suicide attempt [Recovered/Resolved]
  - Acute kidney injury [Recovered/Resolved]
  - Toxicity to various agents [Recovered/Resolved]
